FAERS Safety Report 15716315 (Version 2)
Quarter: 2022Q1

REPORT INFORMATION
  Report Type: Spontaneous
  Country: CH (occurrence: CH)
  Receive Date: 20181213
  Receipt Date: 20220131
  Transmission Date: 20220423
  Serious: Yes (Hospitalization)
  Sender: FDA-Public Use
  Company Number: CH-SM-2018-14064

PATIENT
  Age: 49 Year
  Sex: Male

DRUGS (10)
  1. PIPERACILLIN SODIUM\TAZOBACTAM SODIUM [Suspect]
     Active Substance: PIPERACILLIN SODIUM\TAZOBACTAM SODIUM
     Dosage: 13.5 GRAM DAILY; STARTED TO TREAT THE ALREADY PRESENT NOSOCOMIAL PNEUMONIA
     Route: 041
     Dates: start: 20181105, end: 20181113
  2. VANCOCIN [Suspect]
     Active Substance: VANCOMYCIN HYDROCHLORIDE
     Dosage: 1000 MILLIGRAM DAILY; CONSIDERING THE PERSISTENCE OF FEBRILE PATIENT
     Route: 041
     Dates: start: 20181106, end: 20181113
  3. OPDIVO [Suspect]
     Active Substance: NIVOLUMAB
     Dosage: DOSAGE IS NOT KNOWN. ONE 30-MIN INFUSION CYCLE EVERY 15 DAYS
     Route: 041
     Dates: start: 20181025
  4. CLARITHROMYCIN [Suspect]
     Active Substance: CLARITHROMYCIN
     Route: 041
     Dates: start: 20181112, end: 20181113
  5. LEVETIRACETAM [Concomitant]
     Active Substance: LEVETIRACETAM
     Dosage: 1000 MILLIGRAM DAILY;
     Route: 048
  6. PREGABALIN [Concomitant]
     Active Substance: PREGABALIN
     Dosage: 600 MILLIGRAM DAILY;
     Route: 048
  7. QUETIAPINE [Concomitant]
     Active Substance: QUETIAPINE
     Dosage: 50 MILLIGRAM DAILY;
     Route: 048
  8. RIVOTRIL [Concomitant]
     Active Substance: CLONAZEPAM
     Dosage: .5 MILLIGRAM DAILY;
     Route: 048
  9. KETALGIN NOS [Concomitant]
     Active Substance: KETOROLAC TROMETHAMINE OR METHADONE
     Dosage: 30 MILLIGRAM DAILY; DRUG SUSPENDED DURING HOSPITALISATION, BECAUSE THE ANTALGIC TREATMENT WAS MODIFI
     Route: 048
     Dates: end: 201811
  10. HYDROMORPHONE [Concomitant]
     Active Substance: HYDROMORPHONE
     Dosage: 7.8 MILLIGRAM DAILY;
     Route: 048

REACTIONS (2)
  - Drug-induced liver injury [Recovering/Resolving]
  - Hepatic enzyme increased [Recovering/Resolving]

NARRATIVE: CASE EVENT DATE: 20181112
